FAERS Safety Report 14454691 (Version 3)
Quarter: 2020Q3

REPORT INFORMATION
  Report Type: Report from Study
  Country: ES (occurrence: ES)
  Receive Date: 20180129
  Receipt Date: 20180212
  Transmission Date: 20201104
  Serious: Yes (Death, Life-Threatening, Hospitalization, Disabling)
  Sender: FDA-Public Use
  Company Number: ES-JNJFOC-20180108387

PATIENT
  Age: 58 Year
  Sex: Male
  Weight: 75 kg

DRUGS (4)
  1. ATEZOLIZUMAB. [Suspect]
     Active Substance: ATEZOLIZUMAB
     Indication: LUNG NEOPLASM MALIGNANT
     Route: 042
     Dates: start: 20180110, end: 20180110
  2. DARATUMUMAB [Suspect]
     Active Substance: DARATUMUMAB
     Indication: LUNG NEOPLASM MALIGNANT
     Route: 042
  3. DARATUMUMAB [Suspect]
     Active Substance: DARATUMUMAB
     Indication: LUNG NEOPLASM MALIGNANT
     Dosage: MEDICATION KIT NUMBER 05025762
     Route: 042
     Dates: start: 20180109, end: 20180109
  4. ATEZOLIZUMAB. [Suspect]
     Active Substance: ATEZOLIZUMAB
     Indication: LUNG NEOPLASM MALIGNANT
     Route: 042

REACTIONS (3)
  - Respiratory failure [Fatal]
  - Painful respiration [Recovered/Resolved]
  - Dyspnoea [Recovered/Resolved]

NARRATIVE: CASE EVENT DATE: 20180107
